FAERS Safety Report 4340249-X (Version None)
Quarter: 2004Q1

REPORT INFORMATION
  Report Type: 
  Country: None (occurrence: None)
  Receive Date: 20040329
  Receipt Date: 20040105
  Transmission Date: 20041129
  Serious: No
  Sender: FDA-Public Use
  Company Number: 04P-163-0246099-00

PATIENT
  Age: 69 Year
  Sex: Female

DRUGS (10)
  1. HUMIRA [Suspect]
     Indication: RHEUMATOID ARTHRITIS
     Dosage: 40 MG, 1 IN 2 WK, SUBCUTANEOUS
     Route: 058
     Dates: start: 20031219
  2. METHOTREXATE [Concomitant]
  3. PREDNISONE [Concomitant]
  4. ALENDRONATE SODIUM [Concomitant]
  5. ESTACE [Concomitant]
  6. FOLIC ACID [Concomitant]
  7. ATORVASTATIN [Concomitant]
  8. BUCINDOLOL HYDROCHLORIDE [Concomitant]
  9. METOPROLOL SUCCINATE [Concomitant]
  10. ACETAMINOPHEN [Concomitant]

REACTIONS (3)
  - HYPERHIDROSIS [None]
  - INFLUENZA [None]
  - RHINORRHOEA [None]
